FAERS Safety Report 4282968-X (Version None)
Quarter: 2004Q1

REPORT INFORMATION
  Report Type: 
  Country: None (occurrence: None)
  Receive Date: 20040130
  Receipt Date: 20040115
  Transmission Date: 20041129
  Serious: Yes (Hospitalization, Other)
  Sender: FDA-Public Use
  Company Number: ZA-BRISTOL-MYERS SQUIBB COMPANY-12484986

PATIENT
  Age: 51 Year
  Sex: Male

DRUGS (4)
  1. EFAVIRENZ TABS [Suspect]
     Indication: HIV INFECTION
     Route: 048
     Dates: start: 20031208, end: 20040114
  2. LAMIVUDINE + ZIDOVUDINE [Suspect]
     Indication: HIV INFECTION
     Dates: start: 20031208, end: 20040114
  3. SULFAMETHOXAZOLE + TRIMETHOPRIM [Concomitant]
     Dates: start: 20031107
  4. PYRIDOXINE [Concomitant]
     Dates: start: 20031119

REACTIONS (10)
  - ALANINE AMINOTRANSFERASE INCREASED [None]
  - ANAEMIA [None]
  - ASPARTATE AMINOTRANSFERASE INCREASED [None]
  - BLOOD ALKALINE PHOSPHATASE INCREASED [None]
  - BLOOD AMYLASE INCREASED [None]
  - GAMMA-GLUTAMYLTRANSFERASE INCREASED [None]
  - HEPATIC ENZYME INCREASED [None]
  - HYPOPROTEINAEMIA [None]
  - JAUNDICE [None]
  - OEDEMA PERIPHERAL [None]
